FAERS Safety Report 9201231 (Version 1)
Quarter: 2013Q2

REPORT INFORMATION
  Report Type: Spontaneous
  Country: FR (occurrence: FR)
  Receive Date: 20130401
  Receipt Date: 20130401
  Transmission Date: 20140414
  Serious: Yes (Life-Threatening, Hospitalization)
  Sender: FDA-Public Use
  Company Number: FR-JNJFOC-20130312418

PATIENT
  Age: 27 Year
  Sex: Male

DRUGS (9)
  1. RISPERDAL [Suspect]
     Indication: PRODUCT USED FOR UNKNOWN INDICATION
     Route: 048
     Dates: end: 20130225
  2. TERCIAN [Suspect]
     Indication: PRODUCT USED FOR UNKNOWN INDICATION
     Route: 048
     Dates: end: 20130225
  3. THERALENE [Suspect]
     Indication: PRODUCT USED FOR UNKNOWN INDICATION
     Dosage: 30 DROPS ONCE PER DAY (EVENING)
     Route: 048
     Dates: end: 20130225
  4. LOXAPAC [Suspect]
     Indication: PRODUCT USED FOR UNKNOWN INDICATION
     Route: 048
     Dates: end: 20130225
  5. LEPTICUR [Suspect]
     Indication: PRODUCT USED FOR UNKNOWN INDICATION
     Route: 048
     Dates: end: 20130225
  6. SIMVASTATIN [Concomitant]
     Indication: PRODUCT USED FOR UNKNOWN INDICATION
     Route: 065
  7. IMOVANE [Concomitant]
     Route: 065
  8. EZETROL [Concomitant]
     Indication: HYPERLIPIDAEMIA
     Route: 065
  9. DELURSAN [Concomitant]
     Indication: HEPATIC STEATOSIS
     Route: 065

REACTIONS (2)
  - Gastrointestinal necrosis [Recovering/Resolving]
  - Colectomy [Recovered/Resolved with Sequelae]
